FAERS Safety Report 14247096 (Version 2)
Quarter: 2017Q4

REPORT INFORMATION
  Report Type: Report from Study
  Country: GB (occurrence: GB)
  Receive Date: 20171204
  Receipt Date: 20171207
  Transmission Date: 20180321
  Serious: Yes (Other)
  Sender: FDA-Public Use
  Company Number: PHHY2017GB177532

PATIENT
  Age: 70 Year
  Sex: Female

DRUGS (1)
  1. COSENTYX [Suspect]
     Active Substance: SECUKINUMAB
     Indication: ANKYLOSING SPONDYLITIS
     Dosage: 150 MG, QMO (PEN)
     Route: 065
     Dates: start: 201703

REACTIONS (4)
  - Malaise [Unknown]
  - Product storage error [Unknown]
  - Inappropriate schedule of drug administration [Unknown]
  - Viral infection [Unknown]

NARRATIVE: CASE EVENT DATE: 201703
